FAERS Safety Report 26017454 (Version 2)
Quarter: 2025Q4

REPORT INFORMATION
  Report Type: Spontaneous
  Country: EU (occurrence: EU)
  Receive Date: 20251110
  Receipt Date: 20251127
  Transmission Date: 20260118
  Serious: Yes (Other)
  Sender: CELLTRION
  Company Number: None

PATIENT

DRUGS (7)
  1. YUFLYMA [Suspect]
     Active Substance: ADALIMUMAB-AATY
     Indication: Inflammatory bowel disease
     Dosage: 1ST DOSE
     Route: 058
     Dates: start: 20251013
  2. YUFLYMA [Suspect]
     Active Substance: ADALIMUMAB-AATY
  3. XYZAL [Concomitant]
     Active Substance: LEVOCETIRIZINE DIHYDROCHLORIDE
     Indication: Rhinitis allergic
     Dosage: NO ISSUE REPORTED TO DATE WITH THIS MEDICATION
     Route: 048
     Dates: start: 20170404
  4. DESOGESTREL [Concomitant]
     Active Substance: DESOGESTREL
     Indication: Contraception
     Dosage: NO ISSUES REPORTED TO DATE WITH THIS MEDICATION
     Route: 048
     Dates: start: 20250107
  5. SPASMONAL [ALVERINE CITRATE] [Concomitant]
     Indication: Inflammatory bowel disease
     Dosage: NO ISSUES REPORTED TO DATE WITH THIS MEDICATION
     Route: 048
     Dates: start: 20250507
  6. ESOMEPRAZOLE [Concomitant]
     Active Substance: ESOMEPRAZOLE
     Indication: Inflammatory bowel disease
     Dosage: NO ISSUES REPORTED TO DATE WITH THIS MEDICATION
     Dates: start: 20250107
  7. ACETYLCYSTEINE [Concomitant]
     Active Substance: ACETYLCYSTEINE
     Indication: Detoxification
     Dosage: TOOK FOR THREE MONTHS ENDING BEGINNING OF SEPTEMBER
     Dates: start: 20250603, end: 202509

REACTIONS (7)
  - Menstrual disorder [Recovered/Resolved]
  - Pain [Unknown]
  - Mental disorder [Unknown]
  - Headache [Unknown]
  - Nausea [Unknown]
  - Pruritus [Unknown]
  - Rhinitis [Unknown]

NARRATIVE: CASE EVENT DATE: 20250101
